FAERS Safety Report 8510129-4 (Version None)
Quarter: 2012Q3

REPORT INFORMATION
  Report Type: 
  Country: None (occurrence: None)
  Receive Date: 20120713
  Receipt Date: 20120622
  Transmission Date: 20120928
  Serious: Yes (Other)
  Sender: FDA-Public Use
  Company Number: FR-B.I. PHARMACEUTICALS,INC./RIDGEFIELD-2012-FF-00809FF

PATIENT
  Sex: Female

DRUGS (9)
  1. ACETAMINOPHEN [Concomitant]
  2. FLECAINIDE ACETATE [Concomitant]
     Dosage: 150 MG
  3. LASIX [Concomitant]
     Dosage: 20 MG
  4. LERCANIDIPINE [Concomitant]
     Dosage: 10 MG
  5. NEXIUM [Concomitant]
     Dosage: 20 MG
  6. CANDESARTAN CILEXETIL AND HYDROCHLOROTHIAZIDE [Concomitant]
     Dosage: 16/12.5 MG
  7. PRADAXA [Suspect]
     Route: 048
     Dates: end: 20120601
  8. SYMBICORT [Concomitant]
     Dosage: 400 MG
  9. MOVIPREP [Concomitant]

REACTIONS (5)
  - PRURITUS [None]
  - ASTHENIA [None]
  - DYSPNOEA [None]
  - CONDITION AGGRAVATED [None]
  - GLUCOSE TOLERANCE IMPAIRED [None]
